FAERS Safety Report 25673395 (Version 1)
Quarter: 2025Q3

REPORT INFORMATION
  Report Type: Spontaneous
  Country: US (occurrence: None)
  Receive Date: 20250813
  Receipt Date: 20250813
  Transmission Date: 20251020
  Serious: Yes (Hospitalization)
  Sender: ENCUBE ETHICALS
  Company Number: US-Encube-002123

PATIENT
  Age: 41 Year
  Sex: Male

DRUGS (4)
  1. TRIAMCINOLONE ACETONIDE [Suspect]
     Active Substance: TRIAMCINOLONE ACETONIDE
     Indication: Phimosis
     Dosage: FINGERTIP AMOUNT
  2. RITONAVIR [Suspect]
     Active Substance: RITONAVIR
     Indication: HIV infection
  3. DARUNAVIR ETHANOLATE [Concomitant]
     Active Substance: DARUNAVIR ETHANOLATE
     Indication: HIV infection
  4. DOLUTEGRAVIR [Concomitant]
     Active Substance: DOLUTEGRAVIR
     Indication: HIV infection

REACTIONS (5)
  - Cushing^s syndrome [Unknown]
  - Adrenal insufficiency [Unknown]
  - Diabetes mellitus [Unknown]
  - Off label use [Unknown]
  - Drug interaction [Unknown]
